FAERS Safety Report 13150604 (Version 1)
Quarter: 2017Q1

REPORT INFORMATION
  Report Type: Report from Study
  Country: CA (occurrence: CA)
  Receive Date: 20170125
  Receipt Date: 20170125
  Transmission Date: 20170428
  Serious: Yes (Other)
  Sender: FDA-Public Use
  Company Number: CA-JNJFOC-20170101412

PATIENT
  Age: 50 Year
  Sex: Male
  Weight: 92 kg

DRUGS (3)
  1. REMICADE [Suspect]
     Active Substance: INFLIXIMAB
     Indication: COLITIS ULCERATIVE
     Dosage: 5 MG/KG
     Route: 042
     Dates: start: 20170117
  2. PREDNISONE. [Concomitant]
     Active Substance: PREDNISONE
     Route: 048
     Dates: start: 20161220
  3. REMICADE [Suspect]
     Active Substance: INFLIXIMAB
     Indication: COLITIS ULCERATIVE
     Dosage: 5 MG/KG
     Route: 042
     Dates: start: 20161220

REACTIONS (6)
  - Infusion related reaction [Recovered/Resolved]
  - Lower respiratory tract infection [Unknown]
  - Dysgeusia [Recovered/Resolved]
  - Nausea [Recovered/Resolved]
  - General physical health deterioration [Unknown]
  - Hospitalisation [Unknown]

NARRATIVE: CASE EVENT DATE: 201612
